FAERS Safety Report 6642379-6 (Version None)
Quarter: 2010Q1

REPORT INFORMATION
  Report Type: 
  Country: None (occurrence: None)
  Receive Date: 20100319
  Receipt Date: 20100311
  Transmission Date: 20100710
  Serious: Yes (Hospitalization)
  Sender: FDA-Public Use
  Company Number: US-ROCHE-691236

PATIENT
  Age: 50 Year
  Sex: Female

DRUGS (8)
  1. PEG-INTERFERON ALFA 2A (RO 25-8310) [Suspect]
     Indication: HEPATITIS C
     Route: 058
     Dates: start: 20090604
  2. RIBAVIRIN [Suspect]
     Indication: HEPATITIS C
     Route: 048
     Dates: start: 20090604
  3. RIBAVIRIN [Suspect]
     Route: 048
  4. PROCRIT [Concomitant]
     Dates: start: 20100216
  5. LYRICA [Concomitant]
     Dates: start: 20090421
  6. CYMBALTA [Concomitant]
     Dates: start: 20090408
  7. DIAZEPAM [Concomitant]
     Dates: start: 20090916
  8. RITALIN [Concomitant]
     Dates: start: 20080201

REACTIONS (1)
  - SYNCOPE [None]
